FAERS Safety Report 18641853 (Version 1)
Quarter: 2020Q4

REPORT INFORMATION
  Report Type: Spontaneous
  Country: US (occurrence: US)
  Receive Date: 20201221
  Receipt Date: 20201221
  Transmission Date: 20210114
  Serious: No
  Sender: FDA-Public Use
  Company Number: US-009507513-2012USA005620

PATIENT
  Sex: Female

DRUGS (2)
  1. PROGESTERONE. [Concomitant]
     Active Substance: PROGESTERONE
     Dosage: STRENGHT: 50MG/ML
     Dates: start: 20200909
  2. FOLLISTIM [Suspect]
     Active Substance: FOLLITROPIN
     Dosage: STRENGTH: 900 IU/1.08 ML, DOSE: 225 UNITS, DAY
     Route: 058
     Dates: start: 20200205

REACTIONS (1)
  - Abnormal dreams [Unknown]
